FAERS Safety Report 25439282 (Version 1)
Quarter: 2025Q2

REPORT INFORMATION
  Report Type: Spontaneous
  Country: US (occurrence: None)
  Receive Date: 20250614
  Receipt Date: 20250614
  Transmission Date: 20250716
  Serious: No
  Sender: FDA-CTU
  Company Number: None

PATIENT
  Age: 72 Year
  Sex: Female

DRUGS (2)
  1. IMATINIB [Suspect]
     Active Substance: IMATINIB
  2. IMATINIB [Concomitant]
     Active Substance: IMATINIB
     Dates: start: 20250225

REACTIONS (3)
  - Diarrhoea [None]
  - Feeling cold [None]
  - Fatigue [None]

NARRATIVE: CASE EVENT DATE: 20250614
